FAERS Safety Report 13549603 (Version 9)
Quarter: 2019Q1

REPORT INFORMATION
  Report Type: Report from Study
  Country: BR (occurrence: BR)
  Receive Date: 20170516
  Receipt Date: 20190227
  Transmission Date: 20190417
  Serious: Yes (Hospitalization)
  Sender: FDA-Public Use
  Company Number: PHHY2017BR069862

PATIENT
  Sex: Female
  Weight: 39 kg

DRUGS (9)
  1. SANDOSTATIN LAR DEPOT [Suspect]
     Active Substance: OCTREOTIDE ACETATE
     Dosage: 40 MG, UNK
     Route: 030
     Dates: end: 201805
  2. SIMETHICONE (DIMETHICONE) [Concomitant]
     Active Substance: DIMETHICONE
     Indication: FLATULENCE
     Dosage: 1 DF, QD
     Route: 048
     Dates: start: 2015
  3. LUTETIUM (LU 177) [Suspect]
     Active Substance: LUTETIUM LU-177
     Indication: PRODUCT USED FOR UNKNOWN INDICATION
     Dosage: 2 DF, (2 CYCLES)
     Route: 065
  4. SANDOSTATIN LAR DEPOT [Suspect]
     Active Substance: OCTREOTIDE ACETATE
     Indication: PANCREATIC NEUROENDOCRINE TUMOUR
     Dosage: 20 MG, QMO
     Route: 030
     Dates: start: 201508
  5. DIPYRONE [Concomitant]
     Active Substance: DIPYRONE
     Indication: PAIN
     Dosage: 500 MG, QD
     Route: 048
     Dates: start: 2015
  6. DIPYRONE [Concomitant]
     Active Substance: DIPYRONE
     Indication: PYREXIA
  7. INTERFERON [Concomitant]
     Active Substance: INTERFERON
     Indication: PANCREATIC NEUROENDOCRINE TUMOUR
     Route: 065
  8. SIMETHICONE (DIMETHICONE) [Concomitant]
     Active Substance: DIMETHICONE
     Indication: MUSCLE SPASMS
     Dosage: 2 DF, QD
     Route: 048
     Dates: start: 2015
  9. BUSCOPAN [Concomitant]
     Active Substance: BUTYLSCOPOLAMINE BROMIDE
     Indication: MUSCLE SPASMS
     Dosage: 2 DF, QD
     Route: 048
     Dates: start: 2015

REACTIONS (14)
  - Back pain [Recovered/Resolved]
  - Nausea [Recovered/Resolved]
  - Pancreatic disorder [Recovering/Resolving]
  - Pyrexia [Unknown]
  - Blood disorder [Recovering/Resolving]
  - Diarrhoea [Recovered/Resolved]
  - Malaise [Unknown]
  - Fatigue [Unknown]
  - Liver disorder [Recovering/Resolving]
  - Pain [Recovered/Resolved]
  - Asthenia [Recovered/Resolved]
  - Platelet count decreased [Recovered/Resolved]
  - Decreased appetite [Recovered/Resolved]
  - Abdominal pain [Unknown]

NARRATIVE: CASE EVENT DATE: 2018
